FAERS Safety Report 13570638 (Version 8)
Quarter: 2022Q1

REPORT INFORMATION
  Report Type: Spontaneous
  Country: CA (occurrence: CA)
  Receive Date: 20170523
  Receipt Date: 20220307
  Transmission Date: 20220424
  Serious: Yes (Life-Threatening, Hospitalization, Disabling, Other)
  Sender: FDA-Public Use
  Company Number: CA-AUROBINDO-AUR-APL-2017-34600

PATIENT
  Age: 12 Day
  Sex: Male
  Weight: 3.896 kg

DRUGS (26)
  1. LAMOTRIGINE [Suspect]
     Active Substance: LAMOTRIGINE
     Indication: Bipolar disorder
     Dosage: 250 MILLIGRAM, ONCE A DAY
     Route: 064
  2. LAMOTRIGINE [Suspect]
     Active Substance: LAMOTRIGINE
     Dosage: 250 MILLIGRAM, ONCE A DAY
     Route: 063
  3. LAMOTRIGINE [Suspect]
     Active Substance: LAMOTRIGINE
     Dosage: UNK
     Route: 064
  4. ARIPIPRAZOLE [Suspect]
     Active Substance: ARIPIPRAZOLE
     Indication: Bipolar disorder
     Dosage: UNK
     Route: 064
  5. SERTRALINE [Suspect]
     Active Substance: SERTRALINE HYDROCHLORIDE
     Indication: Bipolar disorder
     Dosage: 100 MILLIGRAM, ONCE A DAY
     Route: 064
  6. SERTRALINE [Suspect]
     Active Substance: SERTRALINE HYDROCHLORIDE
     Dosage: 100 MILLIGRAM, ONCE A DAY
     Route: 063
  7. ABILIFY [Suspect]
     Active Substance: ARIPIPRAZOLE
     Indication: Bipolar disorder
     Dosage: 15 MILLIGRAM, ONCE A DAY
     Route: 064
  8. ABILIFY [Suspect]
     Active Substance: ARIPIPRAZOLE
     Dosage: 15 MILLIGRAM, ONCE A DAY
     Route: 063
  9. ACETAMINOPHEN\CODEINE PHOSPHATE [Suspect]
     Active Substance: ACETAMINOPHEN\CODEINE PHOSPHATE
     Indication: Product used for unknown indication
     Dosage: UNK
     Route: 063
  10. ACETAMINOPHEN\CODEINE PHOSPHATE [Suspect]
     Active Substance: ACETAMINOPHEN\CODEINE PHOSPHATE
     Dosage: UNK
     Route: 064
  11. DOCUSATE [Suspect]
     Active Substance: DOCUSATE
     Indication: Product used for unknown indication
     Dosage: UNK
     Route: 064
  12. DOCUSATE [Suspect]
     Active Substance: DOCUSATE
     Dosage: UNK
     Route: 063
  13. LEVOTHYROXINE [Suspect]
     Active Substance: LEVOTHYROXINE
     Indication: Bipolar disorder
     Dosage: UNK
     Route: 063
  14. LEVOTHYROXINE [Suspect]
     Active Substance: LEVOTHYROXINE
     Dosage: 50 MICROGRAM, ONCE A DAY
     Route: 064
  15. LEVOTHYROXINE [Suspect]
     Active Substance: LEVOTHYROXINE
     Dosage: 50 MICROGRAM, ONCE A DAY
     Route: 065
  16. LEVOTHYROXINE [Suspect]
     Active Substance: LEVOTHYROXINE
     Dosage: 50 MILLIGRAM
     Route: 064
  17. FOLIC ACID [Suspect]
     Active Substance: FOLIC ACID
     Indication: Product used for unknown indication
     Dosage: UNK
     Route: 064
  18. FOLIC ACID [Suspect]
     Active Substance: FOLIC ACID
     Dosage: UNK
     Route: 063
  19. NAPROXEN [Suspect]
     Active Substance: NAPROXEN
     Indication: Bipolar disorder
     Dosage: UNK
     Route: 064
  20. NAPROXEN [Suspect]
     Active Substance: NAPROXEN
     Dosage: 100 MILLIGRAM, ONCE A DAY
     Route: 063
  21. LAMOTRIGINE [Suspect]
     Active Substance: LAMOTRIGINE
     Indication: Bipolar disorder
     Dosage: 250 MILLIGRAM, ONCE A DAY
     Route: 064
  22. LAMOTRIGINE [Suspect]
     Active Substance: LAMOTRIGINE
     Dosage: 250 MILLIGRAM, ONCE A DAY
     Route: 063
  23. .ALPHA.-TOCOPHEROL ACETATE, D- [Suspect]
     Active Substance: .ALPHA.-TOCOPHEROL ACETATE, D-
     Indication: Product used for unknown indication
     Dosage: UNK
     Route: 065
  24. ACETAMINOPHEN [Concomitant]
     Active Substance: ACETAMINOPHEN
     Indication: Product used for unknown indication
     Dosage: UNK
     Route: 064
  25. VITAMINS [Concomitant]
     Active Substance: VITAMINS
     Indication: Product use in unapproved indication
     Dosage: UNK
     Route: 064
  26. VITAMINS [Concomitant]
     Active Substance: VITAMINS
     Dosage: UNK
     Route: 063

REACTIONS (51)
  - Disseminated intravascular coagulation [Recovered/Resolved]
  - Dehydration [Recovered/Resolved]
  - Skin turgor decreased [Recovered/Resolved]
  - Moaning [Recovered/Resolved]
  - Hypovolaemic shock [Recovered/Resolved]
  - Acidosis [Recovered/Resolved]
  - Acute kidney injury [Recovered/Resolved]
  - Necrosis [Recovered/Resolved]
  - Rhabdomyolysis [Recovered/Resolved]
  - Partial seizures [Recovered/Resolved]
  - Hyponatraemia [Recovered/Resolved]
  - Peripheral artery thrombosis [Recovered/Resolved]
  - Foetal exposure during pregnancy [Recovered/Resolved]
  - Blood glucose increased [Recovered/Resolved]
  - Gangrene neonatal [Recovered/Resolved]
  - Hypokinesia [Recovered/Resolved]
  - Maternal exposure during breast feeding [Recovered/Resolved]
  - Mucosal disorder [Recovered/Resolved]
  - Pallor [Recovered/Resolved]
  - Skin discolouration [Recovered/Resolved]
  - Weight decrease neonatal [Recovered/Resolved]
  - Gangrene [Recovered/Resolved]
  - Weight decreased [Recovered/Resolved]
  - Exposure via breast milk [Recovered/Resolved]
  - Alanine aminotransferase increased [Recovered/Resolved]
  - Gross motor delay [Recovered/Resolved]
  - Hypernatraemia [Recovered/Resolved]
  - Lethargy [Recovered/Resolved]
  - Partial seizures with secondary generalisation [Recovered/Resolved]
  - Irritability [Recovered/Resolved]
  - Somnolence [Recovered/Resolved]
  - Livedo reticularis [Recovered/Resolved]
  - Hyporesponsive to stimuli [Recovered/Resolved]
  - Petechiae [Recovered/Resolved]
  - Seizure [Recovered/Resolved with Sequelae]
  - Hypotension [Recovered/Resolved]
  - Heart rate increased [Recovered/Resolved]
  - Blood pH abnormal [Unknown]
  - Blood urea abnormal [Recovered/Resolved]
  - Respiratory rate increased [Recovered/Resolved]
  - Hypoperfusion [Recovered/Resolved]
  - White blood cell count increased [Recovered/Resolved]
  - Blood bicarbonate abnormal [Unknown]
  - Blood lactate dehydrogenase abnormal [Unknown]
  - PCO2 abnormal [Unknown]
  - International normalised ratio decreased [Unknown]
  - Blood creatinine increased [Recovered/Resolved]
  - Peripheral artery thrombosis [Recovered/Resolved]
  - Blood fibrinogen decreased [Unknown]
  - Prothrombin time prolonged [Unknown]
  - Mucosal dryness [Recovered/Resolved]

NARRATIVE: CASE EVENT DATE: 20130101
